FAERS Safety Report 21943688 (Version 2)
Quarter: 2023Q2

REPORT INFORMATION
  Report Type: Spontaneous
  Country: US (occurrence: US)
  Receive Date: 20230202
  Receipt Date: 20230623
  Transmission Date: 20230722
  Serious: Yes (Other)
  Sender: FDA-Public Use
  Company Number: US-BRISTOL-MYERS SQUIBB COMPANY-2023-014175

PATIENT
  Age: 64 Year
  Sex: Male
  Weight: 87.54 kg

DRUGS (1)
  1. REVLIMID [Suspect]
     Active Substance: LENALIDOMIDE
     Indication: Plasma cell myeloma
     Dosage: 2W, 1W OFF, QD14DON7DOFF
     Route: 048

REACTIONS (5)
  - Thrombosis [Unknown]
  - Off label use [Unknown]
  - Diarrhoea [Unknown]
  - Decreased appetite [Unknown]
  - Product dose omission issue [Unknown]
